FAERS Safety Report 20481625 (Version 2)
Quarter: 2022Q1

REPORT INFORMATION
  Report Type: Report from Study
  Country: DE (occurrence: DE)
  Receive Date: 20220216
  Receipt Date: 20220310
  Transmission Date: 20220423
  Serious: Yes (Life-Threatening, Other)
  Sender: FDA-Public Use
  Company Number: DE-BRISTOL-MYERS SQUIBB COMPANY-BMS-2022-019711

PATIENT
  Sex: Male

DRUGS (5)
  1. NIVOLUMAB [Suspect]
     Active Substance: NIVOLUMAB
     Indication: Malignant melanoma
     Dosage: 108.0 MILLIGRAM
     Route: 042
     Dates: start: 20191122
  2. NIVOLUMAB [Suspect]
     Active Substance: NIVOLUMAB
     Dosage: 145 MILLIGRAM, Q3WK
     Route: 042
     Dates: start: 20191122
  3. IPILIMUMAB [Suspect]
     Active Substance: IPILIMUMAB
     Indication: Malignant melanoma
     Dosage: 324.0 MILLIGRAM, Q3WK
     Route: 065
     Dates: start: 20191122
  4. IPILIMUMAB [Suspect]
     Active Substance: IPILIMUMAB
     Dosage: 435 MILLIGRAM, Q3WK
     Route: 065
     Dates: start: 20191122, end: 20200127
  5. METHYLPREDNISOLONE [Concomitant]
     Active Substance: METHYLPREDNISOLONE
     Indication: Product used for unknown indication
     Route: 065

REACTIONS (2)
  - Malignant neoplasm progression [Recovering/Resolving]
  - Rheumatoid arthritis [Unknown]

NARRATIVE: CASE EVENT DATE: 20191215
